FAERS Safety Report 16729715 (Version 1)
Quarter: 2019Q3

REPORT INFORMATION
  Report Type: Spontaneous
  Country: US (occurrence: US)
  Receive Date: 20190822
  Receipt Date: 20190822
  Transmission Date: 20191005
  Serious: No
  Sender: FDA-Public Use
  Company Number: US-BRECKENRIDGE PHARMACEUTICAL, INC.-2073515

PATIENT
  Sex: Male

DRUGS (3)
  1. AZELASTINE HYDROCHLORIDE. [Suspect]
     Active Substance: AZELASTINE HYDROCHLORIDE
     Indication: HYPERSENSITIVITY
     Route: 045
  2. HUMIRA [Concomitant]
     Active Substance: ADALIMUMAB
  3. CLARITIN [Concomitant]
     Active Substance: LORATADINE

REACTIONS (8)
  - Oropharyngeal pain [None]
  - Dry mouth [None]
  - Somnolence [None]
  - Rhinorrhoea [None]
  - Nausea [None]
  - Dizziness [None]
  - Fatigue [None]
  - Weight increased [None]
